FAERS Safety Report 15680702 (Version 2)
Quarter: 2018Q4

REPORT INFORMATION
  Report Type: Spontaneous
  Country: CA (occurrence: CA)
  Receive Date: 20181203
  Receipt Date: 20181207
  Transmission Date: 20190205
  Serious: Yes (Death, Life-Threatening, Other)
  Sender: FDA-Public Use
  Company Number: CA-AMGEN-CANSP2018172922

PATIENT
  Age: 56 Year
  Sex: Male
  Weight: 84.4 kg

DRUGS (8)
  1. CARFILZOMIB [Suspect]
     Active Substance: CARFILZOMIB
     Indication: PLASMA CELL MYELOMA
     Dosage: 41 MG, QD
     Route: 042
     Dates: start: 20181112, end: 20181112
  2. DENOSUMAB [Concomitant]
     Active Substance: DENOSUMAB
     Indication: PLASMA CELL MYELOMA
     Dosage: UNK-1.7 ML, UNK
     Dates: start: 20151231, end: 20181030
  3. TYLENOL [Concomitant]
     Active Substance: ACETAMINOPHEN
     Dosage: 325 MG, UNK
     Route: 048
     Dates: start: 20181009, end: 20181029
  4. IXAZOMIB [Concomitant]
     Active Substance: IXAZOMIB
     Dosage: 3-4 MG, UNK
     Dates: start: 20170711
  5. BORTEZOMIB. [Concomitant]
     Active Substance: BORTEZOMIB
     Dosage: UNK
     Dates: start: 20151224
  6. DEXAMETHASONE. [Concomitant]
     Active Substance: DEXAMETHASONE
     Dosage: UNK
     Dates: start: 20151224
  7. CALTRATE WITH VITAMIN D [Concomitant]
     Active Substance: CALCIUM CARBONATE\CHOLECALCIFEROL
     Dosage: 1 UNK, UNK (600 MG CALCIUM PLUS 800 IU OF OF VITAMIN D)
     Route: 048
     Dates: start: 20151231
  8. ACYCLOVIR. [Concomitant]
     Active Substance: ACYCLOVIR
     Dosage: 400 MG, UNK
     Dates: start: 20151224

REACTIONS (1)
  - Death [Fatal]

NARRATIVE: CASE EVENT DATE: 20181113
